FAERS Safety Report 13442918 (Version 1)
Quarter: 2017Q2

REPORT INFORMATION
  Report Type: Spontaneous
  Country: MX (occurrence: MX)
  Receive Date: 20170414
  Receipt Date: 20170414
  Transmission Date: 20170830
  Serious: Yes (Other)
  Sender: FDA-Public Use
  Company Number: MX-VIIV HEALTHCARE LIMITED-MX2017GSK052639

PATIENT

DRUGS (1)
  1. TIVICAY [Suspect]
     Active Substance: DOLUTEGRAVIR SODIUM
     Indication: PRODUCT USED FOR UNKNOWN INDICATION
     Dosage: UNK

REACTIONS (4)
  - Enzyme abnormality [Recovered/Resolved]
  - Hepatic function abnormal [Recovered/Resolved]
  - Diarrhoea [Recovered/Resolved]
  - Gastritis [Recovered/Resolved]
